FAERS Safety Report 6512138-3 (Version None)
Quarter: 2009Q4

REPORT INFORMATION
  Report Type: 
  Country: None (occurrence: None)
  Receive Date: 20091222
  Receipt Date: 20090608
  Transmission Date: 20100525
  Serious: No
  Sender: FDA-Public Use
  Company Number: US-ASTRAZENECA-2009UW14743

PATIENT
  Age: 70 Year
  Sex: Female

DRUGS (6)
  1. CRESTOR [Suspect]
     Indication: BLOOD CHOLESTEROL
     Route: 048
     Dates: start: 20090602
  2. METOPROLOL TARTRATE [Concomitant]
  3. PROZAC [Concomitant]
  4. AMITRIPTYLINE [Concomitant]
  5. TRAZODONE HCL [Concomitant]
  6. VITAMIN + MINERALS [Concomitant]

REACTIONS (2)
  - MUSCLE SPASMS [None]
  - PAIN [None]
